FAERS Safety Report 8977672 (Version 1)
Quarter: 2012Q4

REPORT INFORMATION
  Report Type: 
  Country: BE (occurrence: BE)
  Receive Date: 20121220
  Receipt Date: 20121220
  Transmission Date: 20130627
  Serious: Yes (Other)
  Sender: FDA-Public Use
  Company Number: BE-GLAXOSMITHKLINE-B0854199A

PATIENT
  Age: 66 Year
  Sex: Female
  Weight: 78 kg

DRUGS (2)
  1. ZANTAC [Suspect]
     Indication: PREMEDICATION
     Route: 042
     Dates: start: 20121114
  2. SOLUMEDROL(METHYLPREDNISOLONE SODIUM SUCCINATE) INFUSION [Suspect]
     Indication: PREMEDICATION
     Dosage: 50MG Twice per day
     Route: 042
     Dates: start: 20121114

REACTIONS (4)
  - Erythema [Recovered/Resolved]
  - Paraesthesia [Recovered/Resolved]
  - Erythema [Recovered/Resolved]
  - Dyspnoea [Recovered/Resolved]
